FAERS Safety Report 9472586 (Version 1)
Quarter: 2013Q3

REPORT INFORMATION
  Report Type: Report from Study
  Country: AR (occurrence: AR)
  Receive Date: 20130823
  Receipt Date: 20130823
  Transmission Date: 20140515
  Serious: Yes (Other)
  Sender: FDA-Public Use
  Company Number: PHHY2013AR091164

PATIENT
  Sex: Female

DRUGS (2)
  1. EXFORGE [Suspect]
     Indication: HYPERTENSION
     Dosage: 1 DF (160 MG VALS, 5 MG AMLO), DAILY
     Route: 048
  2. EXFORGE [Suspect]
     Dosage: 1.5 DF (160 MG VALS, 5 MG AMLO), ), DAILY

REACTIONS (3)
  - Nervousness [Recovered/Resolved]
  - Blood pressure increased [Recovered/Resolved]
  - Wrong technique in drug usage process [Recovered/Resolved]
